FAERS Safety Report 6487109-6 (Version None)
Quarter: 2009Q4

REPORT INFORMATION
  Report Type: 
  Country: None (occurrence: None)
  Receive Date: 20091210
  Receipt Date: 20090818
  Transmission Date: 20100525
  Serious: No
  Sender: FDA-Public Use
  Company Number: US-AMGEN-KDL358788

PATIENT
  Sex: Female

DRUGS (16)
  1. ENBREL [Suspect]
     Indication: RHEUMATOID ARTHRITIS
     Route: 058
     Dates: start: 20070101
  2. METHOTREXATE [Concomitant]
  3. K-DUR [Concomitant]
  4. COUMADIN [Concomitant]
  5. LASIX [Concomitant]
  6. ESTRADIOL [Concomitant]
  7. PREDNISONE [Concomitant]
  8. PROPRANOLOL [Concomitant]
  9. MOTRIN [Concomitant]
  10. PRILOSEC [Concomitant]
  11. RESTORIL [Concomitant]
  12. MICROLAX [Concomitant]
  13. MYCELEX [Concomitant]
  14. ZINC [Concomitant]
  15. BUSPAR [Concomitant]
  16. DETROL [Concomitant]

REACTIONS (4)
  - MEDICAL DEVICE COMPLICATION [None]
  - NEPHROLITHIASIS [None]
  - ROTATOR CUFF SYNDROME [None]
  - TENDON RUPTURE [None]
